FAERS Safety Report 12314622 (Version 2)
Quarter: 2016Q2

REPORT INFORMATION
  Report Type: Spontaneous
  Country: US (occurrence: US)
  Receive Date: 20160428
  Receipt Date: 20160505
  Transmission Date: 20160815
  Serious: No
  Sender: FDA-Public Use
  Company Number: US-MDT-ADR-2016-00765

PATIENT
  Age: 18 Year
  Sex: Female

DRUGS (30)
  1. LIDOCAINE HCL GEL [Suspect]
     Active Substance: LIDOCAINE HYDROCHLORIDE
     Indication: PAIN
     Dosage: AS NEEDED
     Route: 061
     Dates: start: 20160322
  2. NYSTATIN. [Suspect]
     Active Substance: NYSTATIN
     Indication: RASH
     Dosage: 100000 UNIT/GM
     Route: 061
     Dates: start: 20160412
  3. BENADRYL [Suspect]
     Active Substance: DIPHENHYDRAMINE HYDROCHLORIDE
     Indication: PRURITUS
     Dosage: 25 MG EVERY 6 HOURS AS NEEDED
     Route: 048
     Dates: start: 20140410
  4. DULCOLAX (BISACODYL) [Suspect]
     Active Substance: BISACODYL
     Dosage: ONE UNIT/EVENING
     Route: 054
     Dates: start: 20150520
  5. POLYETHYLENE GLYCOL [Suspect]
     Active Substance: POLYETHYLENE GLYCOLS
     Indication: CONSTIPATION
     Dosage: 25.50GM/DAY EVERY 14 DAYS
     Route: 048
     Dates: start: 20151108
  6. ZOFRAN ODT [Suspect]
     Active Substance: ONDANSETRON HYDROCHLORIDE
     Indication: NAUSEA
     Dosage: 8 MG EVERY 8 HOURS AS NEEDED
     Route: 048
     Dates: start: 20150416
  7. LIORESAL [Suspect]
     Active Substance: BACLOFEN
     Dosage: 425 MCG/DAY
     Route: 037
     Dates: start: 20160301
  8. CLONAZEPATE DIPOTASSIUM [Suspect]
     Active Substance: CLORAZEPATE DIPOTASSIUM
     Indication: HYPERTONIA
     Dosage: 3.75 MG /DAY
     Route: 048
     Dates: start: 20140325
  9. TINACTIN [Suspect]
     Active Substance: TOLNAFTATE
     Indication: FUNGAL INFECTION
     Dosage: ONE TIME A DAY
     Route: 061
     Dates: start: 20160208
  10. CLARITIN [Suspect]
     Active Substance: LORATADINE
     Indication: HYPERSENSITIVITY
     Dosage: 10 MG /DAY
     Route: 048
     Dates: start: 20160423
  11. XENAZINE [Suspect]
     Active Substance: TETRABENAZINE
     Indication: MUSCLE SPASTICITY
     Dosage: 12.5 MG /TWO TIMES A DAY
     Route: 048
     Dates: start: 20150417
  12. BACLOFEN. [Suspect]
     Active Substance: BACLOFEN
     Dosage: 10 MG ONE TABLET BY MOUTH EVERY FOUR HOURS AS NEEDED
     Route: 048
     Dates: start: 20131212
  13. HYDROCORTISONE. [Suspect]
     Active Substance: HYDROCORTISONE
     Indication: PRURITUS
     Dosage: AS NEEDED
     Route: 061
     Dates: start: 20140307
  14. POLYETHYLENE GLYCOL [Suspect]
     Active Substance: POLYETHYLENE GLYCOLS
     Dosage: 35 GRAM/DAY
     Route: 048
     Dates: start: 20160416
  15. MULTIVITAMIN [Suspect]
     Active Substance: VITAMINS
     Indication: NUTRITIONAL SUPPLEMENTATION
     Dosage: ONE TABLET/DAY
     Route: 048
     Dates: start: 20140411
  16. FLEET ENEMA [Suspect]
     Active Substance: SODIUM PHOSPHATE, DIBASIC\SODIUM PHOSPHATE, MONOBASIC
     Indication: CONSTIPATION
     Dosage: ONE TIME A DAY EVERY 14 DAYS
     Route: 054
     Dates: start: 20151106
  17. BENADRYL [Suspect]
     Active Substance: DIPHENHYDRAMINE HYDROCHLORIDE
     Indication: AGITATION
     Dosage: 25 MG EVERY 6 HOURS AS NEEDED
     Route: 048
     Dates: start: 20140410
  18. BENZOYL PEROXIDE. [Suspect]
     Active Substance: BENZOYL PEROXIDE
     Indication: ACNE
     Dosage: EVERY 24 HOURS AS NEEDED
     Route: 061
     Dates: start: 20160415
  19. LIDOCAINE PRILOCAINE [Suspect]
     Active Substance: LIDOCAINE\PRILOCAINE
     Indication: PAIN
     Dosage: AS NEEDED
     Route: 061
     Dates: start: 20151127
  20. PROMETHIAZINE HCL [Suspect]
     Active Substance: PROMETHAZINE HYDROCHLORIDE
     Indication: NAUSEA
     Dosage: 25 MG EVERY 6 HOURS AS NEEDED
     Route: 048
     Dates: start: 20151009
  21. DEBROX [Suspect]
     Active Substance: CARBAMIDE PEROXIDE
     Indication: EXCESSIVE CERUMEN PRODUCTION
     Dosage: 5 DROPS IN BOTH EARS /DAY/ MON TUE WED THU
     Route: 001
     Dates: start: 20150919
  22. NASONEX [Suspect]
     Active Substance: MOMETASONE FUROATE
     Indication: HYPERSENSITIVITY
     Dosage: ONE SPRAY IN BOTH NOSTRILS TWO TIMES A DAY
     Route: 045
     Dates: start: 20140331
  23. PROTOPIC [Suspect]
     Active Substance: TACROLIMUS
     Indication: VITILIGO
     Dosage: TWO TIMES A DAY
     Route: 061
     Dates: start: 20160305
  24. SENEXON [Suspect]
     Active Substance: SENNOSIDES A AND B
     Dosage: THREE TEASPOON/ DAY
     Route: 048
     Dates: start: 20151214
  25. VITAMIN D3 [Suspect]
     Active Substance: CHOLECALCIFEROL
     Indication: NUTRITIONAL SUPPLEMENTATION
     Dosage: 1200 IU /DAY
     Route: 048
     Dates: start: 20141122
  26. XENAZINE [Suspect]
     Active Substance: TETRABENAZINE
     Indication: MUSCLE SPASTICITY
     Dosage: 25 MG /DAY
     Route: 048
     Dates: start: 20150416
  27. LIDOCAINE HCL GEL [Suspect]
     Active Substance: LIDOCAINE HYDROCHLORIDE
     Indication: PAIN
     Dosage: FOR THREE DAYS
     Route: 061
     Dates: start: 20160325
  28. SALINE [Suspect]
     Active Substance: SODIUM CHLORIDE
     Indication: NASAL CONGESTION
     Dosage: EVERY TWO HOURS AS NEEDED
     Route: 045
     Dates: start: 20160405
  29. LIORESAL [Suspect]
     Active Substance: BACLOFEN
     Dosage: 425 MCG/DAY
     Route: 037
     Dates: start: 20160408
  30. BENZOYL PEROXIDE. [Suspect]
     Active Substance: BENZOYL PEROXIDE
     Indication: ACNE
     Dosage: BEDTIME
     Route: 061
     Dates: start: 20160418

REACTIONS (3)
  - Medical device site pain [Recovered/Resolved]
  - Headache [Recovered/Resolved]
  - Spinal pain [Recovered/Resolved]

NARRATIVE: CASE EVENT DATE: 20160421
